FAERS Safety Report 6564432-8 (Version None)
Quarter: 2010Q1

REPORT INFORMATION
  Report Type: 
  Country: None (occurrence: None)
  Receive Date: 20100201
  Receipt Date: 20100119
  Transmission Date: 20100710
  Serious: Yes (Death)
  Sender: FDA-Public Use
  Company Number: US-BAYER-200941512NA

PATIENT
  Age: 55 Year
  Sex: Male
  Weight: 72 kg

DRUGS (2)
  1. NEXAVAR [Suspect]
     Indication: METASTATIC RENAL CELL CARCINOMA
     Dosage: TOTAL DAILY DOSE: 800 MG  UNIT DOSE: 200 MG
     Route: 048
     Dates: start: 20080919, end: 20081128
  2. TEMSIROLIMUS [Concomitant]
     Dates: start: 20081128

REACTIONS (1)
  - RENAL CELL CARCINOMA [None]
